FAERS Safety Report 25689668 (Version 1)
Quarter: 2025Q3

REPORT INFORMATION
  Report Type: Spontaneous
  Country: US (occurrence: US)
  Receive Date: 20250818
  Receipt Date: 20250818
  Transmission Date: 20251021
  Serious: Yes (Hospitalization, Other)
  Sender: BAYER HEALTHCARE LLC
  Company Number: US-BAYER-2025A107100

PATIENT
  Age: 76 Year
  Sex: Male

DRUGS (7)
  1. ASPIRIN [Suspect]
     Active Substance: ASPIRIN
     Indication: Dialysis
  2. VITAMIN C [Suspect]
     Active Substance: ASCORBIC ACID
  3. IBUPROFEN [Concomitant]
     Active Substance: IBUPROFEN
  4. METFORMIN [Concomitant]
     Active Substance: METFORMIN HYDROCHLORIDE
  5. LOSARTAN [Concomitant]
     Active Substance: LOSARTAN
  6. ACETAMINOPHEN [Concomitant]
     Active Substance: ACETAMINOPHEN
  7. GLIMEPIRIDE [Concomitant]
     Active Substance: GLIMEPIRIDE

REACTIONS (7)
  - Renal failure [None]
  - Pseudohypoglycaemia [None]
  - Contraindicated product administered [None]
  - Hepatic enzyme abnormal [None]
  - Overdose [None]
  - Product use in unapproved indication [None]
  - Product prescribing issue [None]
